FAERS Safety Report 6583338-1 (Version None)
Quarter: 2010Q1

REPORT INFORMATION
  Report Type: 
  Country: None (occurrence: None)
  Receive Date: 20100212
  Receipt Date: 20100212
  Transmission Date: 20100710
  Serious: No
  Sender: FDA-Public Use
  Company Number: None

PATIENT
  Age: 54 Year
  Sex: Male
  Weight: 68.9 kg

DRUGS (2)
  1. SULFAMETHOXAZOLE AND TRIMETHOPRIM [Suspect]
     Indication: INFECTION
     Dosage: 800/160 MG BID PO
     Route: 048
     Dates: start: 20091006, end: 20091015
  2. CLINDAMYCIN [Suspect]
     Indication: INFECTION
     Dosage: 300 MG QID PO
     Route: 048
     Dates: start: 20091013, end: 20091022

REACTIONS (1)
  - RASH [None]
